FAERS Safety Report 10261503 (Version 1)
Quarter: 2014Q2

REPORT INFORMATION
  Report Type: Spontaneous
  Country: GB (occurrence: GB)
  Receive Date: 20140626
  Receipt Date: 20140626
  Transmission Date: 20141212
  Serious: Yes (Other)
  Sender: FDA-Public Use
  Company Number: GB-009507513-1406GBR010187

PATIENT
  Age: 30 Year
  Sex: Female
  Weight: 85 kg

DRUGS (3)
  1. NEXPLANON [Suspect]
     Indication: CONTRACEPTION
     Route: 051
     Dates: start: 20140117
  2. CETIRIZINE HYDROCHLORIDE [Concomitant]
  3. TERBUTALINE SULFATE [Concomitant]

REACTIONS (4)
  - Mood swings [Recovering/Resolving]
  - Anger [Recovering/Resolving]
  - Irritability [Recovering/Resolving]
  - Mood altered [Recovering/Resolving]
